FAERS Safety Report 23243104 (Version 5)
Quarter: 2023Q4

REPORT INFORMATION
  Report Type: Spontaneous
  Country: CA (occurrence: CA)
  Receive Date: 20231130
  Receipt Date: 20231228
  Transmission Date: 20240110
  Serious: Yes (Other)
  Sender: FDA-Public Use
  Company Number: CA-CELLTRION INC.-2023CA022913

PATIENT

DRUGS (3)
  1. INFLECTRA [Suspect]
     Active Substance: INFLIXIMAB-DYYB
     Indication: Crohn^s disease
     Dosage: 10 MG/KG, EVERY 7 WEEK (ROUND UP)
     Route: 042
     Dates: start: 20230316
  2. INFLECTRA [Suspect]
     Active Substance: INFLIXIMAB-DYYB
     Dosage: 10 MG/KG, EVERY 7 WEEK
     Route: 042
     Dates: start: 20231003
  3. INFLECTRA [Suspect]
     Active Substance: INFLIXIMAB-DYYB
     Dosage: 10 MG/KG, EVERY 7 WEEK ROUND UP (630MG, 9 WEEKS AND 1 DAY)
     Route: 042
     Dates: start: 20231206

REACTIONS (12)
  - Productive cough [Unknown]
  - Sputum discoloured [Unknown]
  - Secretion discharge [Unknown]
  - Pulmonary pain [Unknown]
  - Cellulitis [Recovered/Resolved]
  - Pyrexia [Unknown]
  - Back pain [Unknown]
  - Pneumonia [Recovered/Resolved]
  - Sinusitis [Not Recovered/Not Resolved]
  - Cough [Unknown]
  - Condition aggravated [Unknown]
  - Productive cough [Unknown]

NARRATIVE: CASE EVENT DATE: 20230101
